FAERS Safety Report 21157949 (Version 1)
Quarter: 2022Q3

REPORT INFORMATION
  Report Type: Spontaneous
  Country: US (occurrence: US)
  Receive Date: 20220801
  Receipt Date: 20220801
  Transmission Date: 20221027
  Serious: Yes (Other)
  Sender: FDA-Public Use
  Company Number: US-BAYER-2022P008821

PATIENT
  Age: 54 Year
  Sex: Male

DRUGS (7)
  1. REGORAFENIB [Suspect]
     Active Substance: REGORAFENIB
     Indication: Gastrointestinal stromal tumour
  2. SUNITINIB [Concomitant]
     Active Substance: SUNITINIB
     Dosage: UNK
  3. PAZOPANIB [Concomitant]
     Active Substance: PAZOPANIB
     Dosage: UNK
  4. CABOZANTINIB [Concomitant]
     Active Substance: CABOZANTINIB
     Dosage: UNK
  5. RIPRETINIB [Concomitant]
     Active Substance: RIPRETINIB
     Dosage: UNK
  6. IMATINIB [Concomitant]
     Active Substance: IMATINIB
     Dosage: UNK
  7. SIROLIMUS [Concomitant]
     Active Substance: SIROLIMUS
     Dosage: UNK

REACTIONS (5)
  - Gastrointestinal stromal tumour [None]
  - Hepatic neoplasm [None]
  - Tumour excision [None]
  - Surgery [None]
  - Abdominal pain [Not Recovered/Not Resolved]
